FAERS Safety Report 6864841-3 (Version None)
Quarter: 2010Q3

REPORT INFORMATION
  Report Type: 
  Country: None (occurrence: None)
  Receive Date: 20100721
  Receipt Date: 20080403
  Transmission Date: 20110219
  Serious: No
  Sender: FDA-Public Use
  Company Number: US-PFIZER INC-2008031128

PATIENT
  Sex: Female
  Weight: 63.5 kg

DRUGS (1)
  1. CHANTIX [Suspect]
     Indication: SMOKING CESSATION THERAPY
     Route: 048
     Dates: start: 20080303, end: 20080402

REACTIONS (7)
  - ARTHRALGIA [None]
  - ARTHROPATHY [None]
  - BONE PAIN [None]
  - GAIT DISTURBANCE [None]
  - NAUSEA [None]
  - PYREXIA [None]
  - VOMITING [None]
